FAERS Safety Report 20813247 (Version 1)
Quarter: 2022Q2

REPORT INFORMATION
  Report Type: Spontaneous
  Country: US (occurrence: None)
  Receive Date: 20220510
  Receipt Date: 20220510
  Transmission Date: 20220720
  Serious: No
  Sender: FDA-Public Use
  Company Number: None

PATIENT
  Sex: Male

DRUGS (1)
  1. LENALIDOMIDE [Suspect]
     Active Substance: LENALIDOMIDE
     Indication: Plasma cell myeloma
     Dosage: FREQUENCY : DAILY;?DAILY 21 DAYS ON , 7 DAYS OFF
     Route: 048
     Dates: start: 20220322

REACTIONS (4)
  - Anxiety [None]
  - Depression [None]
  - Disturbance in attention [None]
  - Decreased appetite [None]
